FAERS Safety Report 11193585 (Version 3)
Quarter: 2015Q4

REPORT INFORMATION
  Report Type: Spontaneous
  Country: CO (occurrence: CO)
  Receive Date: 20150616
  Receipt Date: 20151221
  Transmission Date: 20160304
  Serious: Yes (Other)
  Sender: FDA-Public Use
  Company Number: PHHY2015CO067290

PATIENT
  Sex: Male

DRUGS (1)
  1. XORIMAX [Suspect]
     Active Substance: CEFUROXIME AXETIL
     Indication: PRODUCT USED FOR UNKNOWN INDICATION
     Dosage: 500 MG
     Route: 065

REACTIONS (3)
  - Aspiration [Unknown]
  - Drug administration error [Unknown]
  - Vomiting [Unknown]

NARRATIVE: CASE EVENT DATE: 20150602
